FAERS Safety Report 8915338 (Version 1)
Quarter: 2012Q4

REPORT INFORMATION
  Report Type: 
  Country: ES (occurrence: ES)
  Receive Date: 20121116
  Receipt Date: 20121116
  Transmission Date: 20130627
  Serious: Yes (Hospitalization, Other)
  Sender: FDA-Public Use
  Company Number: ES-ROXANE LABORATORIES, INC.-2012-RO-02375RO

PATIENT
  Age: 39 Year
  Sex: Male

DRUGS (4)
  1. METHADONE [Suspect]
  2. ANTICOAGULANTS [Concomitant]
  3. DIURETICS [Concomitant]
  4. ANTIRETROVIRALS [Concomitant]

REACTIONS (5)
  - Pneumonia [Recovered/Resolved]
  - Bacteraemia [Recovered/Resolved]
  - Neisseria infection [Recovered/Resolved]
  - Cardiac murmur [Recovered/Resolved]
  - Right ventricular failure [Recovered/Resolved]
